FAERS Safety Report 7592855-7 (Version None)
Quarter: 2011Q3

REPORT INFORMATION
  Report Type: 
  Country: None (occurrence: None)
  Receive Date: 20110706
  Receipt Date: 20110623
  Transmission Date: 20111222
  Serious: Yes (Hospitalization)
  Sender: FDA-Public Use
  Company Number: FR-PFIZER INC-FR-WYE-H04824708

PATIENT
  Age: 83 Year
  Sex: Female

DRUGS (15)
  1. INNOHEP [Concomitant]
     Route: 058
  2. ALDACTAZIDE [Suspect]
     Dosage: 1 DF, 1X/DAY
     Route: 048
     Dates: end: 20080504
  3. PREDNISONE [Suspect]
     Dosage: 50 MG, 2X/DAY
     Route: 048
     Dates: start: 20080301
  4. ASPEGIC 325 [Concomitant]
     Route: 048
  5. ZOPICLONE [Concomitant]
     Route: 048
  6. PANTOPRAZOLE [Suspect]
     Dosage: UNK
  7. ACTONEL [Concomitant]
     Route: 048
  8. ZOLOFT [Suspect]
     Dosage: UNK
     Route: 048
     Dates: end: 20080504
  9. PREDNISONE [Suspect]
     Dosage: 35 MG, 1X/DAY
     Route: 048
     Dates: end: 20080516
  10. PRITOR [Concomitant]
     Route: 065
  11. PANTOPRAZOLE [Suspect]
     Dosage: 40 MG, 1X/DAY
     Route: 048
  12. PREDNISONE [Suspect]
     Dosage: 25 MG, 1X/DAY
     Route: 048
     Dates: start: 20080517, end: 20080531
  13. POTASSIUM CHLORIDE [Concomitant]
     Route: 048
  14. PREDNISONE [Suspect]
     Dosage: 20 MG, 1X/DAY
     Route: 048
     Dates: start: 20080601
  15. CALCIUM CARBONATE [Concomitant]
     Route: 048

REACTIONS (9)
  - HYPONATRAEMIA [None]
  - DECREASED APPETITE [None]
  - ASTHENIA [None]
  - NAUSEA [None]
  - FALL [None]
  - PERIORBITAL HAEMATOMA [None]
  - VOMITING [None]
  - GENERAL PHYSICAL HEALTH DETERIORATION [None]
  - CONFUSIONAL STATE [None]
